FAERS Safety Report 6334955-5 (Version None)
Quarter: 2009Q3

REPORT INFORMATION
  Report Type: 
  Country: None (occurrence: None)
  Receive Date: 20090827
  Receipt Date: 20090819
  Transmission Date: 20100115
  Serious: Yes (Other)
  Sender: FDA-Public Use
  Company Number: URSO-2009-103 FUP#1

PATIENT
  Age: 74 Year
  Sex: Female

DRUGS (2)
  1. URSO 50MG TABLETS(URSODEOXYCHOLIC ACID) [Suspect]
     Indication: CHOLANGITIS SCLEROSING
     Dosage: ORAL
     Route: 048
  2. SALAZOSULFAPYRIDINE [Concomitant]

REACTIONS (1)
  - GALLBLADDER CANCER [None]
